FAERS Safety Report 8225022-4 (Version None)
Quarter: 2012Q1

REPORT INFORMATION
  Report Type: 
  Country: None (occurrence: None)
  Receive Date: 20120321
  Receipt Date: 20120116
  Transmission Date: 20120608
  Serious: Yes (Hospitalization)
  Sender: FDA-Public Use
  Company Number: FR-ROCHE-1030916

PATIENT
  Sex: Male
  Weight: 44 kg

DRUGS (5)
  1. PEGINTERFERON ALFA-2A [Suspect]
     Indication: HEPATITIS B
     Dosage: GIVEN OF MONDAYS
     Dates: start: 20111013, end: 20111221
  2. FORADIL [Concomitant]
     Dosage: IF NEEDED
  3. ACETAMINOPHEN [Concomitant]
  4. TENOFOVIR [Suspect]
     Indication: PRODUCT USED FOR UNKNOWN INDICATION
     Dates: start: 20091022
  5. BRONCHODUAL [Concomitant]
     Dosage: 3-5 TIMES A DAY IF NEEDED

REACTIONS (1)
  - CHOLESTASIS [None]
